FAERS Safety Report 4441996-1 (Version None)
Quarter: 2004Q3

REPORT INFORMATION
  Report Type: 
  Country: None (occurrence: None)
  Receive Date: 20040907
  Receipt Date: 20040830
  Transmission Date: 20050211
  Serious: Yes (Hospitalization)
  Sender: FDA-Public Use
  Company Number: PHBS2004PH11408

PATIENT
  Age: 14 Year
  Sex: Male

DRUGS (1)
  1. ZADEC [Suspect]
     Indication: ASTHMA
     Dosage: 1 MG/DAY

REACTIONS (2)
  - CONVULSION [None]
  - RASH GENERALISED [None]
